FAERS Safety Report 22223569 (Version 1)
Quarter: 2023Q2

REPORT INFORMATION
  Report Type: Spontaneous
  Country: None (occurrence: DE)
  Receive Date: 20230418
  Receipt Date: 20230418
  Transmission Date: 20230722
  Serious: Yes (Life-Threatening, Hospitalization, Other)
  Sender: FDA-Public Use
  Company Number: DE-B.Braun Medical Inc.-2140512

PATIENT
  Age: 62 Year
  Sex: Male

DRUGS (42)
  1. HEPARIN SODIUM IN DEXTROSE [Suspect]
     Active Substance: HEPARIN SODIUM
     Indication: Thrombosis prophylaxis
  2. CALCIUM CARBONATE\CHOLECALCIFEROL [Suspect]
     Active Substance: CALCIUM CARBONATE\CHOLECALCIFEROL
  3. MOXIFLOXACIN HYDROCHLORIDE [Suspect]
     Active Substance: MOXIFLOXACIN HYDROCHLORIDE
  4. BEROTEC [Suspect]
     Active Substance: FENOTEROL HYDROBROMIDE
  5. CALCIUM [Suspect]
     Active Substance: CALCIUM
  6. NORVASC [Suspect]
     Active Substance: AMLODIPINE BESYLATE
  7. PREDNISOLONE [Suspect]
     Active Substance: PREDNISOLONE
  8. ISOPTIN [Suspect]
     Active Substance: VERAPAMIL HYDROCHLORIDE
  9. ACETYLCYSTEINE [Suspect]
     Active Substance: ACETYLCYSTEINE
  10. CLORAZEPATE DIPOTASSIUM [Suspect]
     Active Substance: CLORAZEPATE DIPOTASSIUM
  11. CHOLECALCIFEROL [Suspect]
     Active Substance: CHOLECALCIFEROL
  12. PHENPROCOUMON [Suspect]
     Active Substance: PHENPROCOUMON
  13. CLONIDINE [Suspect]
     Active Substance: CLONIDINE
  14. BECLOMETHASONE DIPROPIONATE [Suspect]
     Active Substance: BECLOMETHASONE DIPROPIONATE
  15. PREDNISOLONE [Suspect]
     Active Substance: PREDNISOLONE
  16. FORADIL [Suspect]
     Active Substance: FORMOTEROL FUMARATE
  17. SPIRIVA [Suspect]
     Active Substance: TIOTROPIUM BROMIDE MONOHYDRATE
  18. CLORAZEPATE DIPOTASSIUM [Suspect]
     Active Substance: CLORAZEPATE DIPOTASSIUM
  19. THEOPHYLLINE [Suspect]
     Active Substance: THEOPHYLLINE
  20. POTASSIUM CARBONATE\POTASSIUM CITRATE [Suspect]
     Active Substance: POTASSIUM CARBONATE\POTASSIUM CITRATE
  21. OXAZEPAM [Suspect]
     Active Substance: OXAZEPAM
  22. CLOMETHIAZOLE [Suspect]
     Active Substance: CLOMETHIAZOLE
  23. PREDNISONE [Suspect]
     Active Substance: PREDNISONE
  24. HYDROCHLOROTHIAZIDE\RAMIPRIL [Suspect]
     Active Substance: HYDROCHLOROTHIAZIDE\RAMIPRIL
  25. FLUTICASONE PROPIONATE\SALMETEROL XINAFOATE [Suspect]
     Active Substance: FLUTICASONE PROPIONATE\SALMETEROL XINAFOATE
  26. PANTOZOL [Suspect]
     Active Substance: PANTOPRAZOLE SODIUM
  27. OMEPRAZOLE [Suspect]
     Active Substance: OMEPRAZOLE
  28. VERAPAMIL HYDROCHLORIDE [Suspect]
     Active Substance: VERAPAMIL HYDROCHLORIDE
  29. MARCUMAR [Suspect]
     Active Substance: PHENPROCOUMON
  30. INSULIN NOS [Suspect]
     Active Substance: INSULIN NOS
  31. OMEPRAZOLE [Suspect]
     Active Substance: OMEPRAZOLE
  32. NITROGLYCERIN [Suspect]
     Active Substance: NITROGLYCERIN
  33. DIGITOXIN [Suspect]
     Active Substance: DIGITOXIN
  34. PANTOZOL [Suspect]
     Active Substance: PANTOPRAZOLE SODIUM
  35. BRICANYL [Suspect]
     Active Substance: TERBUTALINE SULFATE
  36. AMBROXOL [Suspect]
     Active Substance: AMBROXOL
  37. FUROSEMIDE [Suspect]
     Active Substance: FUROSEMIDE
  38. CLONIDINE [Suspect]
     Active Substance: CLONIDINE
  39. HALOPERIDOL [Concomitant]
     Active Substance: HALOPERIDOL
  40. Delix [Concomitant]
  41. FRUCTOSE\INSULIN BEEF [Concomitant]
     Active Substance: FRUCTOSE\INSULIN BEEF
  42. RINGERLOESUNG [Concomitant]

REACTIONS (7)
  - Toxic epidermal necrolysis [Unknown]
  - Stevens-Johnson syndrome [Unknown]
  - Pruritus [Unknown]
  - Blister [Unknown]
  - Nikolsky^s sign [Unknown]
  - Pyrexia [Unknown]
  - Thrombosis prophylaxis [Unknown]
